FAERS Safety Report 7298811-0 (Version None)
Quarter: 2011Q1

REPORT INFORMATION
  Report Type: 
  Country: None (occurrence: None)
  Receive Date: 20110217
  Receipt Date: 20110211
  Transmission Date: 20110831
  Serious: Yes (Other)
  Sender: FDA-Public Use
  Company Number: GB-B.I. PHARMACEUTICALS,INC./RIDGEFIELD-2011-UK-00137UK

PATIENT

DRUGS (1)
  1. PERSANTIN AMPOULES (00015/0119) [Suspect]
     Indication: CARDIAC STRESS TEST
     Route: 042

REACTIONS (1)
  - CIRCULATORY COLLAPSE [None]
